FAERS Safety Report 19363310 (Version 1)
Quarter: 2021Q2

REPORT INFORMATION
  Report Type: Spontaneous
  Country: JP (occurrence: JP)
  Receive Date: 20210603
  Receipt Date: 20210603
  Transmission Date: 20210717
  Serious: Yes (Other)
  Sender: FDA-Public Use
  Company Number: NVSJ2021JP008310

PATIENT
  Age: 42 Year
  Sex: Female

DRUGS (2)
  1. CAPECITABINE. [Suspect]
     Active Substance: CAPECITABINE
     Indication: PRODUCT USED FOR UNKNOWN INDICATION
     Dosage: UNK
     Route: 065
     Dates: start: 201904
  2. LAPATINIB [Suspect]
     Active Substance: LAPATINIB
     Indication: HER2 POSITIVE BREAST CANCER
     Dosage: UNK
     Route: 048
     Dates: start: 201904

REACTIONS (11)
  - Epilepsy [Unknown]
  - Drug interaction [Unknown]
  - Angular cheilitis [Unknown]
  - Palmar-plantar erythrodysaesthesia syndrome [Unknown]
  - Loss of consciousness [Unknown]
  - Arthralgia [Unknown]
  - Paronychia [Unknown]
  - Onychoclasis [Unknown]
  - Stomatitis [Unknown]
  - Dry skin [Unknown]
  - Rash [Unknown]
